FAERS Safety Report 9511174 (Version 1)
Quarter: 2013Q1

REPORT INFORMATION
  Report Type: Spontaneous
  Country: US (occurrence: None)
  Receive Date: 20130305
  Receipt Date: 20130305
  Transmission Date: 20140127
  Serious: Yes (Hospitalization)
  Sender: FDA-Public Use
  Company Number: 163-21880-11102068

PATIENT
  Age: 73 Year
  Sex: Female
  Weight: 73.48 kg

DRUGS (24)
  1. REVLIMID [Suspect]
     Indication: PLASMA CELL MYELOMA
     Route: 048
     Dates: start: 201103
  2. DEXAMETHASONE(DEXAMETHASONE)(UNKNOWN) [Concomitant]
  3. PERCOCET(OXYCOCET)(UNKNOWN) [Concomitant]
  4. LYRICA(PREGABALIN)(UNKNOWN) [Concomitant]
  5. CLARITIN(LORATADINE)(UNKNOWN) [Concomitant]
  6. L-THYROXINE(LEVOTHYROXINE SODIUM)(UNKNOWN) [Concomitant]
  7. VITAMIN B12(CYANOCOBALAMIN)(UNKNOWN) [Concomitant]
  8. AMITRIPTYLINE(AMITRIPTYLINE)(UNKNOWN) [Concomitant]
  9. PRILOSEC [Concomitant]
  10. LOTENSIN(BENAZEPRIL HYDROCHLORIDE)(UNKNOWN) [Concomitant]
  11. PRAVASTATIN(PRAVASTATIN)(UNKNOWN) [Concomitant]
  12. TENORMIN(ATENOLOL) (UNKNOWN) [Concomitant]
  13. VALTREX(VALACICLOVIR HYDROCHLORIDE)(UNKNOWN) [Concomitant]
  14. BACTRIM DS(BACTRIM)(UNKNOWN) [Concomitant]
  15. CALCIUM(CALCIUM)(UNKNOWN) [Concomitant]
  16. ASPIRIN(ACETYLSALICYLIC ACID)(UNKNOWN) [Concomitant]
  17. ZOMETA(ZOLEDRONIC ACID) (UNKNOWN) [Concomitant]
  18. VELCADE(BORTEZOMIB) (UNKNOWN) [Concomitant]
  19. ANTIVERT(MECLOZINE)(UNKNOWN) [Concomitant]
  20. OMEPRAZOLE(OMEPRAZOLE)(UNKNOWN) [Concomitant]
  21. MS CONTIN(MORPHINE SULFATE)(UNKNOWN) [Concomitant]
  22. ZOLOFT(SERTRALINE HYDROCHLORIDE)(UNKNOWN) [Concomitant]
  23. HYDROCHLOROTHIAZIDE(HYDROCHLOROTHIAZIDE)(UNKNOWN) [Concomitant]
  24. K-DUR(POTASSIUM CHLORIDE) (UNKNOWN) [Concomitant]

REACTIONS (2)
  - Transient ischaemic attack [None]
  - Drug ineffective [None]
